FAERS Safety Report 12798884 (Version 1)
Quarter: 2016Q3

REPORT INFORMATION
  Report Type: Report from Study
  Country: US (occurrence: US)
  Receive Date: 20160930
  Receipt Date: 20160930
  Transmission Date: 20161109
  Serious: Yes (Other)
  Sender: FDA-Public Use
  Company Number: US-AMGEN-USASL2016133460

PATIENT

DRUGS (1)
  1. KYPROLIS [Suspect]
     Active Substance: CARFILZOMIB
     Indication: PRODUCT USED FOR UNKNOWN INDICATION
     Dosage: UNK
     Route: 065

REACTIONS (62)
  - Encephalitis cytomegalovirus [Unknown]
  - Encephalopathy [Unknown]
  - Immunodeficiency [Unknown]
  - Pancytopenia [Unknown]
  - Arteriosclerosis coronary artery [Unknown]
  - Oedema [Unknown]
  - Varices oesophageal [Unknown]
  - Colitis [Unknown]
  - Essential hypertension [Unknown]
  - Type 2 diabetes mellitus [Unknown]
  - Encephalitis viral [Unknown]
  - Pneumonia [Unknown]
  - Cardiac arrest [Unknown]
  - Acute respiratory failure [Unknown]
  - Disorientation [Unknown]
  - Pulmonary function test abnormal [Unknown]
  - Pyrexia [Unknown]
  - Aspergillus infection [Unknown]
  - Bacteraemia [Unknown]
  - Acute kidney injury [Unknown]
  - Hypovolaemia [Unknown]
  - Hypotension [Unknown]
  - Headache [Unknown]
  - Hypomagnesaemia [Unknown]
  - Hypocalcaemia [Unknown]
  - Nocardiosis [Unknown]
  - Dysuria [Unknown]
  - Electrolyte imbalance [Unknown]
  - Blood test abnormal [Unknown]
  - Cough [Unknown]
  - Agranulocytosis [Unknown]
  - Actinomycotic pulmonary infection [Unknown]
  - Gastrooesophageal reflux disease [Unknown]
  - Localised oedema [Unknown]
  - Gait disturbance [Unknown]
  - Dyspnoea [Unknown]
  - Influenza [Unknown]
  - Nicotine dependence [Unknown]
  - Alveolitis allergic [Unknown]
  - Arrhythmia [Unknown]
  - Cardiac failure [Unknown]
  - Mental status changes [Unknown]
  - Oral candidiasis [Unknown]
  - Post procedural complication [Unknown]
  - Gastrointestinal toxicity [Unknown]
  - Fatigue [Unknown]
  - Rash [Unknown]
  - Contusion [Unknown]
  - Bronchitis chronic [Unknown]
  - Hypogammaglobulinaemia [Unknown]
  - Malignant melanoma [Unknown]
  - Atrial fibrillation [Unknown]
  - Sepsis [Unknown]
  - Unevaluable event [Unknown]
  - Oesophagitis [Unknown]
  - Hyperlipidaemia [Unknown]
  - Lung disorder [Unknown]
  - Pleural effusion [Unknown]
  - Anaemia [Unknown]
  - Myelodysplastic syndrome [Unknown]
  - Neutropenia [Unknown]
  - Hyperglycaemia [Unknown]

NARRATIVE: CASE EVENT DATE: 20130404
